FAERS Safety Report 8076137-5 (Version None)
Quarter: 2012Q1

REPORT INFORMATION
  Report Type: 
  Country: None (occurrence: None)
  Receive Date: 20120127
  Receipt Date: 20111011
  Transmission Date: 20120608
  Serious: No
  Sender: FDA-Public Use
  Company Number: US-GLAXOSMITHKLINE-A0949361A

PATIENT
  Age: 51 Year
  Sex: Female

DRUGS (8)
  1. ZANAFLEX [Concomitant]
  2. TRAZODONE HCL [Concomitant]
  3. BUPROPION HYDROCHLORIDE [Suspect]
     Indication: DEPRESSION
     Route: 048
  4. WELLBUTRIN SR [Suspect]
     Indication: DEPRESSION
     Dosage: 100MG TWICE PER DAY
     Route: 048
     Dates: start: 20100801
  5. ASTHMA MEDICATION [Concomitant]
  6. SYNTHROID [Concomitant]
  7. ULTRAM [Concomitant]
  8. DARVOCET [Concomitant]

REACTIONS (9)
  - HEADACHE [None]
  - WITHDRAWAL SYNDROME [None]
  - FLAT AFFECT [None]
  - INSOMNIA [None]
  - ANXIETY [None]
  - SENSATION OF HEAVINESS [None]
  - NAUSEA [None]
  - LETHARGY [None]
  - ANXIETY DISORDER [None]
